FAERS Safety Report 7510407-1 (Version None)
Quarter: 2011Q2

REPORT INFORMATION
  Report Type: 
  Country: None (occurrence: None)
  Receive Date: 20110527
  Receipt Date: 20110525
  Transmission Date: 20111010
  Serious: Yes (Other)
  Sender: FDA-Public Use
  Company Number: GB-MERCK-1105GBR00094

PATIENT
  Age: 55 Year
  Sex: Male
  Weight: 82 kg

DRUGS (9)
  1. AMOXICILLIN [Concomitant]
     Route: 065
     Dates: start: 20110430, end: 20110505
  2. VENLAFAXINE HYDROCHLORIDE [Concomitant]
     Route: 065
     Dates: start: 20110117
  3. ALBUTEROL [Concomitant]
     Route: 065
     Dates: start: 20110204
  4. SIMVASTATIN [Concomitant]
     Route: 048
     Dates: start: 20110117
  5. DICYCLOMINE HYDROCHLORIDE [Concomitant]
     Route: 065
     Dates: start: 20110311, end: 20110422
  6. SINGULAIR [Suspect]
     Route: 048
     Dates: start: 20110513
  7. IPRATROPIUM BROMIDE [Concomitant]
     Route: 065
     Dates: start: 20110311, end: 20110501
  8. PREDNISOLONE [Concomitant]
     Route: 065
     Dates: start: 20110430
  9. SALMETEROL [Concomitant]
     Route: 065
     Dates: start: 20110204

REACTIONS (2)
  - CHEST DISCOMFORT [None]
  - MALAISE [None]
